FAERS Safety Report 6408104-9 (Version None)
Quarter: 2009Q4

REPORT INFORMATION
  Report Type: 
  Country: None (occurrence: None)
  Receive Date: 20091016
  Receipt Date: 20091004
  Transmission Date: 20100525
  Serious: Yes (Other)
  Sender: FDA-Public Use
  Company Number: 1-20299759

PATIENT
  Age: 17 Year
  Sex: Female

DRUGS (4)
  1. ULTIVA [Suspect]
     Indication: ANAESTHESIA
     Dosage: 0.15 MCG/KG/MIN, CONTINUOUS, INTRAVENOUS
     Route: 042
  2. SEVOFLURANE [Suspect]
     Indication: ANAESTHESIA
     Dosage: 1.5-2.0%, CONTINUOUS, INHALATION
     Route: 055
  3. PROPOFOL [Concomitant]
  4. VECURONIUM BROMIDE [Concomitant]

REACTIONS (3)
  - BLOOD PRESSURE DIASTOLIC DECREASED [None]
  - BRADYCARDIA [None]
  - BUNDLE BRANCH BLOCK [None]
